FAERS Safety Report 6946340-3 (Version None)
Quarter: 2010Q3

REPORT INFORMATION
  Report Type: 
  Country: None (occurrence: None)
  Receive Date: 20100827
  Receipt Date: 20091006
  Transmission Date: 20110219
  Serious: No
  Sender: FDA-Public Use
  Company Number: US-ABBOTT-09P-163-0573110-00

PATIENT
  Sex: Male
  Weight: 120.31 kg

DRUGS (4)
  1. NIASPAN [Suspect]
     Indication: HIGH DENSITY LIPOPROTEIN DECREASED
     Route: 048
     Dates: start: 20090401, end: 20090430
  2. NIASPAN [Suspect]
     Indication: BLOOD CHOLESTEROL INCREASED
     Route: 048
     Dates: start: 20090501
  3. NIASPAN [Suspect]
     Dates: start: 20090701
  4. FISH OIL [Concomitant]
     Indication: HIGH DENSITY LIPOPROTEIN DECREASED

REACTIONS (5)
  - ERYTHEMA [None]
  - FLUSHING [None]
  - PRURITUS [None]
  - RASH [None]
  - SKIN BURNING SENSATION [None]
